FAERS Safety Report 7609978-6 (Version None)
Quarter: 2011Q3

REPORT INFORMATION
  Report Type: 
  Country: None (occurrence: None)
  Receive Date: 20110714
  Receipt Date: 20110630
  Transmission Date: 20111222
  Serious: Yes (Hospitalization)
  Sender: FDA-Public Use
  Company Number: NL-GENENTECH-321100

PATIENT
  Sex: Male
  Weight: 66 kg

DRUGS (15)
  1. CYTARABINE [Suspect]
     Dosage: 7.2 G, UNK
     Route: 042
     Dates: start: 20091205
  2. FLUDARABINE PHOSPHATE [Suspect]
     Dosage: 55 MG, UNK
     Route: 065
     Dates: start: 20100307, end: 20100309
  3. AUGMENTIN '125' [Concomitant]
     Indication: FEBRILE NEUTROPENIA
     Dosage: 625 MG, TID
     Route: 048
     Dates: start: 20091218
  4. VALACYCLOVIR HYDROCHLORIDE [Concomitant]
     Indication: HERPES VIRUS INFECTION
     Dosage: 500 MG, BID
     Route: 048
     Dates: start: 20100301, end: 20100831
  5. DEXAMETHASONE [Suspect]
     Dosage: 40 MG, UNK
     Route: 048
     Dates: start: 20100201
  6. CISPLATIN [Suspect]
     Dosage: 179 MG, UNK
     Route: 042
     Dates: start: 20100201
  7. CYTARABINE [Suspect]
     Dosage: 3600 MG, UNK
     Route: 042
     Dates: start: 20100202
  8. CIPROXIN (NETHERLANDS) [Concomitant]
     Indication: FEBRILE NEUTROPENIA
     Dosage: 500 MG, BID
     Route: 048
     Dates: start: 20091218
  9. CYCLOSPORINE [Concomitant]
     Indication: PRODUCT USED FOR UNKNOWN INDICATION
     Dosage: 75 MG, BID
     Route: 048
     Dates: start: 20100301, end: 20100831
  10. VORICONAZOL [Concomitant]
     Indication: ASPERGILLOSIS
     Dosage: 200 MG, BID
     Route: 048
     Dates: start: 20100201, end: 20100831
  11. FLUDARABINE PHOSPHATE [Suspect]
     Indication: CHRONIC LYMPHOCYTIC LEUKAEMIA
     Dosage: 2000 MG/M2, BID
     Route: 065
     Dates: start: 20091204
  12. RITUXIMAB [Suspect]
     Indication: MALIGNANT LYMPHOID NEOPLASM
     Dosage: UNK
     Route: 042
     Dates: start: 20091204
  13. CISPLATIN [Suspect]
     Indication: MALIGNANT LYMPHOID NEOPLASM
     Dosage: UNK
     Route: 042
     Dates: start: 20091204
  14. CYTARABINE [Suspect]
     Indication: MALIGNANT LYMPHOID NEOPLASM
     Dosage: 2000 MG/M2, BID
     Route: 042
     Dates: start: 20091204, end: 20091204
  15. DEXAMETHASONE [Suspect]
     Indication: MALIGNANT LYMPHOID NEOPLASM
     Dosage: UNK
     Route: 048
     Dates: start: 20091204

REACTIONS (1)
  - PERICARDITIS [None]
